FAERS Safety Report 6795959-1 (Version None)
Quarter: 2010Q2

REPORT INFORMATION
  Report Type: 
  Country: None (occurrence: None)
  Receive Date: 20100625
  Receipt Date: 20100617
  Transmission Date: 20101027
  Serious: Yes (Other)
  Sender: FDA-Public Use
  Company Number: B0662032A

PATIENT
  Sex: Female

DRUGS (4)
  1. ZYBAN [Suspect]
     Indication: DRUG USE FOR UNKNOWN INDICATION
     Route: 048
     Dates: start: 20081001
  2. REMICADE [Suspect]
     Indication: PSORIATIC ARTHROPATHY
     Route: 065
  3. UNKNOWN DRUG [Suspect]
     Indication: PSORIATIC ARTHROPATHY
     Route: 065
  4. FOLACIN [Concomitant]

REACTIONS (2)
  - ANOSMIA [None]
  - DYSGEUSIA [None]
